FAERS Safety Report 14976225 (Version 1)
Quarter: 2018Q2

REPORT INFORMATION
  Report Type: Spontaneous
  Country: US (occurrence: US)
  Receive Date: 20180605
  Receipt Date: 20180605
  Transmission Date: 20180711
  Serious: No
  Sender: FDA-Public Use
  Company Number: US-ROCHE-2038941

PATIENT
  Sex: Female

DRUGS (7)
  1. ACTEMRA [Suspect]
     Active Substance: TOCILIZUMAB
     Indication: RHEUMATOID ARTHRITIS
     Route: 065
     Dates: end: 201711
  2. METHOTREXATE. [Concomitant]
     Active Substance: METHOTREXATE
     Dosage: CURRENT
     Route: 065
  3. SIMPONI ARIA [Concomitant]
     Active Substance: GOLIMUMAB
     Route: 065
     Dates: start: 201508, end: 201607
  4. HUMIRA [Concomitant]
     Active Substance: ADALIMUMAB
     Route: 065
     Dates: start: 201112, end: 201509
  5. ENBREL [Concomitant]
     Active Substance: ETANERCEPT
     Route: 048
     Dates: start: 200010, end: 201112
  6. PREDNISONE. [Concomitant]
     Active Substance: PREDNISONE
     Dosage: CURRENT
     Route: 065
  7. ORENCIA [Concomitant]
     Active Substance: ABATACEPT
     Route: 065
     Dates: start: 201609, end: 201707

REACTIONS (2)
  - No adverse event [Unknown]
  - Drug ineffective [Unknown]
